FAERS Safety Report 11787692 (Version 2)
Quarter: 2015Q4

REPORT INFORMATION
  Report Type: Spontaneous
  Country: FR (occurrence: FR)
  Receive Date: 20151130
  Receipt Date: 20151201
  Transmission Date: 20160305
  Serious: Yes (Life-Threatening, Hospitalization, Other)
  Sender: FDA-Public Use
  Company Number: FR-PFIZER INC-2015413200

PATIENT
  Age: 19 Year
  Sex: Male

DRUGS (10)
  1. PRODILANTIN [Suspect]
     Active Substance: FOSPHENYTOIN SODIUM
     Indication: STATUS EPILEPTICUS
     Dosage: 1400 MG, UNK
     Route: 042
     Dates: start: 20151026, end: 20151026
  2. CISATRACURIUM BESILATE [Suspect]
     Active Substance: CISATRACURIUM BESYLATE
     Dosage: 20 MG, DAILY
     Route: 042
     Dates: start: 20151026, end: 20151026
  3. VOTUBIA [Concomitant]
     Active Substance: EVEROLIMUS
     Dosage: 10 MG, 1X/DAY (EVENING)
     Route: 048
     Dates: end: 20151026
  4. RIVOTRIL [Suspect]
     Active Substance: CLONAZEPAM
     Dosage: 1 MG, 2X/DAY
     Route: 042
     Dates: start: 20151026, end: 20151026
  5. SUFENTANIL [Suspect]
     Active Substance: SUFENTANIL
     Dosage: 15 UG ONCE PER HOUR
     Route: 042
     Dates: start: 20151026, end: 20151028
  6. TEGRETOL LP [Concomitant]
     Active Substance: CARBAMAZEPINE
     Dosage: 1/2 DF ON THE MORNING AND 1 DF IN THE EVENING
     Route: 048
     Dates: end: 20151028
  7. ROCURONIUM BROMIDE. [Suspect]
     Active Substance: ROCURONIUM BROMIDE
     Dosage: 70 MG, DAILY
     Route: 042
     Dates: start: 20151026, end: 20151026
  8. PROPOFOL. [Suspect]
     Active Substance: PROPOFOL
     Dosage: 180 MG, DAILY
     Route: 042
     Dates: start: 20151026, end: 20151026
  9. PERFALGAN [Suspect]
     Active Substance: ACETAMINOPHEN
     Dosage: 1 G, ONCE EVERY 6 HOURS
     Route: 042
     Dates: start: 20151026, end: 20151028
  10. MIDAZOLAM [Suspect]
     Active Substance: MIDAZOLAM\MIDAZOLAM HYDROCHLORIDE
     Dosage: 10 MG PER HOUR
     Route: 042
     Dates: start: 20151026, end: 20151026

REACTIONS (4)
  - Rhabdomyolysis [Unknown]
  - Hepatitis fulminant [Recovering/Resolving]
  - Hepatic failure [Unknown]
  - Metabolic acidosis [Unknown]

NARRATIVE: CASE EVENT DATE: 20151028
